FAERS Safety Report 5367377-4 (Version None)
Quarter: 2007Q2

REPORT INFORMATION
  Report Type: 
  Country: None (occurrence: None)
  Receive Date: 20070622
  Receipt Date: 20060626
  Transmission Date: 20071010
  Serious: No
  Sender: FDA-Public Use
  Company Number: US-ASTRAZENECA-2006UW13468

PATIENT
  Age: 36 Year
  Sex: Male
  Weight: 68 kg

DRUGS (2)
  1. PULMICORT [Suspect]
     Indication: DYSPNOEA
     Route: 055
  2. TEGRETOL [Concomitant]

REACTIONS (1)
  - CHEST PAIN [None]
